FAERS Safety Report 4377673-5 (Version None)
Quarter: 2004Q2

REPORT INFORMATION
  Report Type: 
  Country: None (occurrence: None)
  Receive Date: 20040615
  Receipt Date: 20040604
  Transmission Date: 20050107
  Serious: Yes (Hospitalization)
  Sender: FDA-Public Use
  Company Number: NL-ROCHE-370181

PATIENT
  Age: 24 Year
  Sex: Female

DRUGS (5)
  1. ALL-TRANS-RETINOIC ACID [Suspect]
     Indication: ACUTE PROMYELOCYTIC LEUKAEMIA
     Route: 065
  2. ALL-TRANS-RETINOIC ACID [Suspect]
     Dosage: RESTARTED AFTER TWO WEEKS
     Route: 065
  3. TRANEXAMIC ACID [Suspect]
     Indication: ACUTE PROMYELOCYTIC LEUKAEMIA
     Route: 065
  4. CORTICOSTEROIDS [Concomitant]
  5. IDARUBICIN HCL [Concomitant]
     Dosage: AFTER THERAPY STOPPED FOR FOUR DAYS IT WAS GIVEN ANOTHER THREE TIMES TO FINISH THE FIRST CYCLE OF C+

REACTIONS (23)
  - ANAEMIA [None]
  - ANURIA [None]
  - AZOTAEMIA [None]
  - BLOOD LACTATE DEHYDROGENASE INCREASED [None]
  - BLOOD PHOSPHORUS INCREASED [None]
  - DEPRESSED LEVEL OF CONSCIOUSNESS [None]
  - EPISTAXIS [None]
  - GENERAL PHYSICAL HEALTH DETERIORATION [None]
  - HAEMATOMA [None]
  - HAEMODIALYSIS [None]
  - HAEMORRHAGIC DIATHESIS [None]
  - HYPERTENSION [None]
  - HYPOXIA [None]
  - LEUKOPENIA [None]
  - OEDEMA PERIPHERAL [None]
  - PLEURAL EFFUSION [None]
  - RENAL ARTERY THROMBOSIS [None]
  - RENAL ATROPHY [None]
  - RENAL CORTICAL NECROSIS [None]
  - THROMBOCYTOPENIA [None]
  - TUMOUR LYSIS SYNDROME [None]
  - URINE OUTPUT DECREASED [None]
  - WEIGHT INCREASED [None]
